FAERS Safety Report 5994785-0 (Version None)
Quarter: 2008Q4

REPORT INFORMATION
  Report Type: 
  Country: None (occurrence: None)
  Receive Date: 20081212
  Receipt Date: 20081104
  Transmission Date: 20090506
  Serious: No
  Sender: FDA-Public Use
  Company Number: US-ABBOTT-08P-163-0476295-00

PATIENT
  Sex: Female
  Weight: 86.26 kg

DRUGS (13)
  1. HUMIRA [Suspect]
     Indication: PSORIASIS
     Dosage: 80 MG LOADING DOSE
     Dates: start: 20080820, end: 20080820
  2. HUMIRA [Suspect]
     Dates: start: 20080828
  3. DOXEPIN HCL [Suspect]
     Indication: PRURITUS
     Route: 048
     Dates: start: 20080910, end: 20080923
  4. FUROSEMIDE [Concomitant]
     Indication: CARDIAC DISORDER
     Route: 048
     Dates: start: 20060101
  5. FUROSEMIDE [Concomitant]
     Indication: DIURETIC THERAPY
  6. ATORVASTATIN CALCIUM [Concomitant]
     Indication: BLOOD CHOLESTEROL
     Route: 048
     Dates: start: 20060101
  7. METOPROLOL SUCCINATE [Concomitant]
     Indication: CARDIAC DISORDER
     Route: 048
     Dates: start: 20060101
  8. ACETYLSALICYLIC ACID SRT [Concomitant]
     Indication: CARDIAC DISORDER
     Route: 048
     Dates: start: 20060101
  9. ERGOCALCIFEROL [Concomitant]
     Indication: VITAMIN SUPPLEMENTATION
     Route: 048
     Dates: start: 20080101
  10. ASCORBIC ACID [Concomitant]
     Indication: VITAMIN SUPPLEMENTATION
     Route: 048
     Dates: start: 20080101
  11. FOLIC ACID [Concomitant]
     Indication: VITAMIN SUPPLEMENTATION
     Route: 048
  12. FISH OIL [Concomitant]
     Indication: SUPPLEMENTATION THERAPY
     Route: 048
     Dates: start: 20080101
  13. CIMETIDINE [Concomitant]
     Indication: DRUG USE FOR UNKNOWN INDICATION

REACTIONS (9)
  - FLUID RETENTION [None]
  - JOINT RANGE OF MOTION DECREASED [None]
  - PAIN IN EXTREMITY [None]
  - RASH ERYTHEMATOUS [None]
  - RASH MACULAR [None]
  - RASH PRURITIC [None]
  - SKIN TIGHTNESS [None]
  - TENDERNESS [None]
  - WALKING AID USER [None]
